FAERS Safety Report 7319437-6 (Version None)
Quarter: 2011Q1

REPORT INFORMATION
  Report Type: 
  Country: None (occurrence: None)
  Receive Date: 20110228
  Receipt Date: 20100325
  Transmission Date: 20110831
  Serious: No
  Sender: FDA-Public Use
  Company Number: A0851996A

PATIENT
  Age: 50 Year
  Sex: Female

DRUGS (5)
  1. LEVOTHYROXINE SODIUM [Concomitant]
  2. LAMICTAL [Suspect]
     Indication: DEPRESSION
     Dosage: 300MG PER DAY
     Route: 048
     Dates: start: 20070101
  3. VITAMIN D [Concomitant]
  4. SIMVASTATIN [Concomitant]
  5. NIASPAN [Concomitant]

REACTIONS (1)
  - MUSCLE TWITCHING [None]
